FAERS Safety Report 15957035 (Version 1)
Quarter: 2019Q1

REPORT INFORMATION
  Report Type: Spontaneous
  Country: NL (occurrence: NL)
  Receive Date: 20190213
  Receipt Date: 20190213
  Transmission Date: 20190417
  Serious: Yes (Other)
  Sender: FDA-Public Use
  Company Number: NL-MYLANLABS-2019M1012447

PATIENT
  Age: 37 Year
  Sex: Female

DRUGS (10)
  1. IPRATROPIUM W/SALBUTAMOL [Concomitant]
  2. BECLOMETASONE;FORMOTEROL [Concomitant]
     Active Substance: BECLOMETHASONE\FORMOTEROL
  3. OLANZAPINE MYLAN 10 MG ORODISPERSIBLE TABLETS [Suspect]
     Active Substance: OLANZAPINE
     Indication: BIPOLAR DISORDER
     Dosage: 10 MILLIGRAM, QD (*E?NMAAL DAAGS 1 TABLET VAN 10MG + ??NMAAL DAAGS 1 TABLET VAN 5MG   )
     Route: 048
     Dates: start: 20180724, end: 20180813
  4. OMEPRAZOL                          /00661201/ [Concomitant]
     Active Substance: OMEPRAZOLE
  5. MOVICOLON [Concomitant]
     Active Substance: POLYETHYLENE GLYCOL 3350\POTASSIUM CHLORIDE\SODIUM BICARBONATE\SODIUM CHLORIDE
  6. LORAZEPAM. [Concomitant]
     Active Substance: LORAZEPAM
  7. DEPAKINE                           /00228501/ [Concomitant]
     Active Substance: VALPROIC ACID
  8. OLANZAPINE MYLAN 5 MG ORODISPERSIBLE TABLETS [Suspect]
     Active Substance: OLANZAPINE
     Indication: BIPOLAR DISORDER
     Dosage: E?NMAAL DAAGS 1 TABLET VAN 10MG + ??NMAAL DAAGS 1 TABLET VAN 5MG
     Route: 048
     Dates: start: 20180724, end: 20180813
  9. PARACETAMOL [Concomitant]
     Active Substance: ACETAMINOPHEN
  10. TEMAZEPAM. [Concomitant]
     Active Substance: TEMAZEPAM

REACTIONS (6)
  - Vomiting [Unknown]
  - Drug ineffective [Unknown]
  - Pruritus [Unknown]
  - Therapeutic response unexpected [Unknown]
  - Restlessness [Unknown]
  - Nausea [Unknown]

NARRATIVE: CASE EVENT DATE: 20180810
